FAERS Safety Report 18422160 (Version 4)
Quarter: 2021Q4

REPORT INFORMATION
  Report Type: Spontaneous
  Country: JP (occurrence: JP)
  Receive Date: 20201023
  Receipt Date: 20211203
  Transmission Date: 20220303
  Serious: Yes (Death, Other)
  Sender: FDA-Public Use
  Company Number: JP-CELGENE-JPN-20201004603

PATIENT
  Age: 86 Year
  Sex: Female

DRUGS (5)
  1. REVLIMID [Suspect]
     Active Substance: LENALIDOMIDE
     Indication: Follicular lymphoma
     Route: 048
     Dates: start: 20200412, end: 2020
  2. REVLIMID [Suspect]
     Active Substance: LENALIDOMIDE
     Route: 048
     Dates: start: 202005, end: 20200612
  3. RITUXIMAB [Concomitant]
     Active Substance: RITUXIMAB
     Indication: Follicular lymphoma
     Dosage: UNKNOWN
     Route: 041
     Dates: start: 201211
  4. RITUXIMAB [Concomitant]
     Active Substance: RITUXIMAB
     Route: 041
     Dates: start: 20200412, end: 2020
  5. RITUXIMAB [Concomitant]
     Active Substance: RITUXIMAB
     Route: 041
     Dates: start: 202005, end: 20200612

REACTIONS (2)
  - Follicular lymphoma [Fatal]
  - Neutropenia [Recovered/Resolved]

NARRATIVE: CASE EVENT DATE: 20200427
